FAERS Safety Report 5712302-7 (Version None)
Quarter: 2008Q2

REPORT INFORMATION
  Report Type: 
  Country: None (occurrence: None)
  Receive Date: 20080421
  Receipt Date: 20080421
  Transmission Date: 20081010
  Serious: Yes (Other)
  Sender: FDA-Public Use
  Company Number: None

PATIENT
  Age: 11 Month
  Sex: Female
  Weight: 8.1647 kg

DRUGS (4)
  1. SINGULAIR [Suspect]
     Indication: EAR DISORDER
     Dosage: 1/2 PACKET  DAILY  PO
     Route: 048
     Dates: start: 20071206, end: 20080418
  2. SINGULAIR [Suspect]
     Indication: LACRIMATION INCREASED
     Dosage: 1/2 PACKET  DAILY  PO
     Route: 048
     Dates: start: 20071206, end: 20080418
  3. SINGULAIR [Suspect]
     Indication: RHINORRHOEA
     Dosage: 1/2 PACKET  DAILY  PO
     Route: 048
     Dates: start: 20071206, end: 20080418
  4. ANTIBIOTICS [Concomitant]

REACTIONS (11)
  - ABDOMINAL DISTENSION [None]
  - ABDOMINAL PAIN [None]
  - DECREASED APPETITE [None]
  - DYSKINESIA [None]
  - EXCORIATION [None]
  - FLATULENCE [None]
  - INSOMNIA [None]
  - IRRITABILITY [None]
  - MUSCLE SPASMS [None]
  - RESTLESSNESS [None]
  - URINE ODOUR ABNORMAL [None]
